FAERS Safety Report 19284315 (Version 1)
Quarter: 2021Q2

REPORT INFORMATION
  Report Type: Other
  Country: CA (occurrence: CA)
  Receive Date: 20210521
  Receipt Date: 20210521
  Transmission Date: 20210717
  Serious: Yes (Death, Other)
  Sender: FDA-Public Use
  Company Number: CA-APOTEX-2021AP012039

PATIENT
  Sex: Male

DRUGS (2)
  1. FINGOLIMOD. [Suspect]
     Active Substance: FINGOLIMOD
     Indication: RELAPSING-REMITTING MULTIPLE SCLEROSIS
     Dosage: 0.5 MILLIGRAM, QD
     Route: 048
  2. FINGOLIMOD. [Suspect]
     Active Substance: FINGOLIMOD
     Dosage: UNK
     Route: 065

REACTIONS (1)
  - Death [Fatal]
